FAERS Safety Report 7035624-9 (Version None)
Quarter: 2010Q4

REPORT INFORMATION
  Report Type: 
  Country: None (occurrence: None)
  Receive Date: 20101008
  Receipt Date: 20101004
  Transmission Date: 20110411
  Serious: Yes (Death)
  Sender: FDA-Public Use
  Company Number: JP-JNJFOC-20101000784

PATIENT
  Age: 42 Year
  Sex: Male

DRUGS (20)
  1. DUROTEP MT [Suspect]
     Indication: PAIN
     Route: 062
  2. DUROTEP MT [Suspect]
     Route: 062
  3. DUROTEP MT [Suspect]
     Route: 062
  4. DUROTEP MT [Suspect]
     Route: 062
  5. PREGABALIN [Suspect]
     Indication: PRODUCT USED FOR UNKNOWN INDICATION
     Route: 048
  6. PREGABALIN [Suspect]
     Route: 048
  7. PREGABALIN [Suspect]
     Route: 048
  8. PREGABALIN [Suspect]
     Route: 048
  9. MORPHINE HYDROCHLORIDE [Concomitant]
     Indication: PAIN
     Dosage: 20-40 MG/DAY, 5-20 MG/ONCE
     Route: 048
  10. GABAPEN [Concomitant]
     Route: 048
  11. SOLANAX [Concomitant]
     Route: 048
  12. AMITRIPTYLINE HCL [Concomitant]
     Route: 048
  13. DESYREL [Concomitant]
     Route: 048
  14. CYMBALTA [Concomitant]
     Route: 048
  15. MAGMITT [Concomitant]
     Route: 048
  16. HALCION [Concomitant]
     Route: 048
  17. HALCION [Concomitant]
     Route: 048
  18. LANDSEN [Concomitant]
     Route: 048
  19. ROHYPNOL [Concomitant]
     Route: 048
  20. DEPAS [Concomitant]
     Route: 048

REACTIONS (9)
  - ANXIETY [None]
  - CARDIAC FAILURE ACUTE [None]
  - CARDIO-RESPIRATORY ARREST [None]
  - DEPRESSIVE SYMPTOM [None]
  - FATIGUE [None]
  - FIBROMYALGIA [None]
  - INSOMNIA [None]
  - PAIN [None]
  - SUICIDE ATTEMPT [None]
